FAERS Safety Report 12857621 (Version 1)
Quarter: 2016Q4

REPORT INFORMATION
  Report Type: Spontaneous
  Country: US (occurrence: US)
  Receive Date: 20161018
  Receipt Date: 20161018
  Transmission Date: 20170207
  Serious: No
  Sender: FDA-Public Use
  Company Number: US-APOTEX-2016AP009027

PATIENT
  Age: 78 Year
  Sex: Male

DRUGS (1)
  1. APO-FLUTICASONE [Suspect]
     Active Substance: FLUTICASONE PROPIONATE
     Indication: RHINORRHOEA
     Dosage: UNK
     Route: 045

REACTIONS (2)
  - Bronchitis [Recovering/Resolving]
  - Nasal dryness [Recovering/Resolving]
